FAERS Safety Report 7688377-5 (Version None)
Quarter: 2011Q3

REPORT INFORMATION
  Report Type: 
  Country: None (occurrence: None)
  Receive Date: 20110817
  Receipt Date: 20110808
  Transmission Date: 20111222
  Serious: Yes (Disabling, Other)
  Sender: FDA-Public Use
  Company Number: MX-SANOFI-AVENTIS-2011SA050902

PATIENT
  Age: 44 Year
  Sex: Female

DRUGS (6)
  1. TAXOTERE [Suspect]
     Indication: BREAST CANCER
     Dosage: 130 MG EVERY 21 DAYS DURING 4 CYCLES.
     Route: 042
     Dates: start: 20100921, end: 20101124
  2. LEUPROLIDE ACETATE [Suspect]
     Indication: BREAST CANCER
     Route: 065
     Dates: start: 20101124
  3. EXEMESTANE [Suspect]
     Indication: BREAST CANCER
     Route: 065
     Dates: start: 20101124
  4. CYCLOPHOSPHAMIDE [Suspect]
     Indication: BREAST CANCER
     Dosage: 4 CYCLES (NOS).
     Route: 065
     Dates: start: 20100621, end: 20100831
  5. EPIRUBICIN [Suspect]
     Indication: BREAST CANCER
     Dosage: 4 CYCLES (NOS).
     Route: 065
     Dates: start: 20100621, end: 20100831
  6. FLUOROURACIL [Suspect]
     Indication: BREAST CANCER
     Dosage: 4 CYCLES (NOS).
     Route: 065
     Dates: start: 20100621, end: 20100831

REACTIONS (2)
  - PERIPHERAL SENSORIMOTOR NEUROPATHY [None]
  - CARPAL TUNNEL SYNDROME [None]
